FAERS Safety Report 5348552-1 (Version None)
Quarter: 2007Q2

REPORT INFORMATION
  Report Type: 
  Country: None (occurrence: None)
  Receive Date: 20070605
  Receipt Date: 20070521
  Transmission Date: 20071010
  Serious: Yes (Other)
  Sender: FDA-Public Use
  Company Number: 100#08#2007-01781

PATIENT
  Age: 21 Year
  Sex: Male

DRUGS (1)
  1. OXYBUTYNIN [Suspect]
     Indication: ENURESIS
     Dosage: 15 MG

REACTIONS (8)
  - DECREASED APPETITE [None]
  - DEPRESSION [None]
  - FEELING GUILTY [None]
  - FEELINGS OF WORTHLESSNESS [None]
  - HALLUCINATIONS, MIXED [None]
  - PERSECUTORY DELUSION [None]
  - PSYCHOTIC DISORDER [None]
  - SOMNOLENCE [None]
